FAERS Safety Report 4381277-8 (Version None)
Quarter: 2004Q2

REPORT INFORMATION
  Report Type: 
  Country: None (occurrence: None)
  Receive Date: 20040614
  Receipt Date: 20040608
  Transmission Date: 20050107
  Serious: Yes (Death)
  Sender: FDA-Public Use
  Company Number: TIF2004A00022

PATIENT
  Age: 77 Year
  Sex: Male

DRUGS (10)
  1. LEUPROLIDE ACETATE [Suspect]
     Indication: PROSTATE CANCER
     Dosage: (3.75 MG 1 IN 28 D), SUBCUTANEOUS
     Route: 058
     Dates: start: 20021016, end: 20040121
  2. FLUTAMIDE [Suspect]
     Indication: PROSTATE CANCER
     Dosage: (1 IN 1 D), PER ORAL
     Route: 048
     Dates: start: 20021016, end: 20040121
  3. ATB DOXYGEXAL (TABLETS) [Concomitant]
  4. JUMEX (SELEGILINE) (TABLETS) [Concomitant]
  5. DILCEREN (TABLETS) [Concomitant]
  6. SORBIMON (ISOSORBIDE MONONITRATE) (TABLETS) [Concomitant]
  7. TRENTAL (PENTOXIFYLLINE) (TABLETS) [Concomitant]
  8. ARELVERT [Concomitant]
  9. ENAPRIL (ENALAPRIL) [Concomitant]
  10. BERODUAL SPRAY [Concomitant]

REACTIONS (8)
  - BRONCHIAL CARCINOMA [None]
  - BRONCHOPNEUMONIA [None]
  - CEREBROVASCULAR DISORDER [None]
  - MALIGNANT NEOPLASM PROGRESSION [None]
  - METASTASES TO BONE [None]
  - METASTASES TO LUNG [None]
  - OBSTRUCTIVE CHRONIC BRONCHITIS WITH ACUTE EXACERBATION [None]
  - PROSTATE CANCER [None]
